FAERS Safety Report 5385225-3 (Version None)
Quarter: 2007Q3

REPORT INFORMATION
  Report Type: 
  Country: None (occurrence: None)
  Receive Date: 20070706
  Receipt Date: 20070706
  Transmission Date: 20080115
  Serious: Yes (Hospitalization)
  Sender: FDA-Public Use
  Company Number: None

PATIENT
  Age: 24 Year
  Sex: Female
  Weight: 57.6068 kg

DRUGS (1)
  1. NUVARING [Suspect]
     Indication: CONTRACEPTION
     Dosage: MONTHLY VAG
     Route: 067
     Dates: start: 20070601, end: 20070627

REACTIONS (2)
  - CONTRACEPTIVE DEVICE COMPLICATION [None]
  - PULMONARY EMBOLISM [None]
